FAERS Safety Report 7117074-X (Version None)
Quarter: 2010Q4

REPORT INFORMATION
  Report Type: 
  Country: None (occurrence: None)
  Receive Date: 20101122
  Receipt Date: 20101111
  Transmission Date: 20110411
  Serious: Yes (Death, Hospitalization)
  Sender: FDA-Public Use
  Company Number: PH-BAXTER-2010BH028144

PATIENT
  Age: 69 Year
  Sex: Female

DRUGS (2)
  1. DIANEAL [Suspect]
     Indication: PERITONEAL DIALYSIS
     Route: 033
     Dates: start: 20080602, end: 20101103
  2. DIANEAL [Suspect]
     Route: 033
     Dates: start: 20080602, end: 20101103

REACTIONS (7)
  - ELECTROLYTE IMBALANCE [None]
  - HYPERTENSION [None]
  - MALNUTRITION [None]
  - RENAL FAILURE CHRONIC [None]
  - STRESS ULCER [None]
  - TYPE 2 DIABETES MELLITUS [None]
  - UPPER GASTROINTESTINAL HAEMORRHAGE [None]
